FAERS Safety Report 4842682-6 (Version None)
Quarter: 2005Q4

REPORT INFORMATION
  Report Type: 
  Country: None (occurrence: None)
  Receive Date: 20051129
  Receipt Date: 20051110
  Transmission Date: 20060501
  Serious: Yes (Hospitalization)
  Sender: FDA-Public Use
  Company Number: US200511000272

PATIENT
  Age: 80 Year
  Sex: Female

DRUGS (3)
  1. ZYPREXA [Suspect]
     Dosage: SEE IMAGE
     Route: 065
  2. CYMBALTA [Suspect]
     Indication: DIABETIC NEUROPATHY
     Dosage: 30 MG, 2/D, UNK
     Route: 065
  3. ACTOS (PIOGLITAZONE UNKNOWN FORMULATION) [Concomitant]

REACTIONS (7)
  - FAECAL INCONTINENCE [None]
  - HYPOAESTHESIA [None]
  - SEDATION [None]
  - SOCIAL AVOIDANT BEHAVIOUR [None]
  - SOMNOLENCE [None]
  - URINARY INCONTINENCE [None]
  - WEIGHT INCREASED [None]
